FAERS Safety Report 8364571-5 (Version None)
Quarter: 2012Q2

REPORT INFORMATION
  Report Type: 
  Country: None (occurrence: None)
  Receive Date: 20120514
  Receipt Date: 20120502
  Transmission Date: 20120825
  Serious: Yes (Hospitalization)
  Sender: FDA-Public Use
  Company Number: USA/USA/12/0024230

PATIENT
  Age: 88 Year
  Sex: Female
  Weight: 57.6068 kg

DRUGS (4)
  1. LISINOPRIL [Concomitant]
  2. VITAMIN B12 [Concomitant]
  3. CHLORTHALIDONE [Concomitant]
  4. NAPROXEN [Suspect]
     Indication: PAIN
     Dosage: 220 MG, 2 IN 1 D, ORAL
     Route: 048

REACTIONS (14)
  - BLOOD THYROID STIMULATING HORMONE INCREASED [None]
  - IRON DEFICIENCY ANAEMIA [None]
  - BLOOD GLUCOSE INCREASED [None]
  - GASTRIC ULCER HAEMORRHAGE [None]
  - ASTHENIA [None]
  - WEIGHT DECREASED [None]
  - CONSTIPATION [None]
  - BLOOD UREA INCREASED [None]
  - BLOOD ALBUMIN DECREASED [None]
  - DUODENAL ULCER HAEMORRHAGE [None]
  - ATRIAL FIBRILLATION [None]
  - VITAMIN D DEFICIENCY [None]
  - URINARY TRACT INFECTION [None]
  - OSTEOPOROSIS [None]
